FAERS Safety Report 4746417-7 (Version None)
Quarter: 2005Q3

REPORT INFORMATION
  Report Type: 
  Country: None (occurrence: None)
  Receive Date: 20050815
  Receipt Date: 20050729
  Transmission Date: 20060218
  Serious: Yes (Death, Life-Threatening, Other)
  Sender: FDA-Public Use
  Company Number: JP_030601217

PATIENT
  Age: 73 Year
  Sex: Female
  Weight: 39 kg

DRUGS (4)
  1. GEMZAR [Suspect]
     Indication: PANCREATIC CARCINOMA
     Dosage: 1000 MG/M2 OTHER
     Dates: start: 20030122, end: 20030122
  2. LASIX [Concomitant]
  3. SEROTONE (AZASETRON HYDROCHLORIDE) [Concomitant]
  4. PICIBANIL (STREPTOCOCCUS PYOGENES) [Concomitant]

REACTIONS (6)
  - ASCITES [None]
  - ASTHENIA [None]
  - BLOOD PRESSURE SYSTOLIC DECREASED [None]
  - MALIGNANT NEOPLASM PROGRESSION [None]
  - PNEUMONIA ASPIRATION [None]
  - URETHRAL CARUNCLE [None]
